FAERS Safety Report 8558891-9 (Version None)
Quarter: 2012Q3

REPORT INFORMATION
  Report Type: 
  Country: None (occurrence: None)
  Receive Date: 20120801
  Receipt Date: 20120717
  Transmission Date: 20120928
  Serious: Yes (Other)
  Sender: FDA-Public Use
  Company Number: CHPA2012US015891

PATIENT
  Age: 71 Year
  Sex: Female

DRUGS (2)
  1. BENEFIBER W/ WHEAT DEXTRIN [Suspect]
     Indication: BOWEL MOVEMENT IRREGULARITY
     Dosage: 1 TSP, TID
     Route: 048
     Dates: start: 20090101
  2. MILK OF MAGNESIA TAB [Concomitant]
     Dosage: UNK, UNK

REACTIONS (3)
  - THERAPEUTIC RESPONSE UNEXPECTED [None]
  - OFF LABEL USE [None]
  - SINUS DISORDER [None]
